FAERS Safety Report 12710674 (Version 1)
Quarter: 2016Q3

REPORT INFORMATION
  Report Type: Spontaneous
  Country: FR (occurrence: FR)
  Receive Date: 20160902
  Receipt Date: 20160902
  Transmission Date: 20161109
  Serious: Yes (Hospitalization)
  Sender: FDA-Public Use
  Company Number: FR-PFIZER INC-2016411638

PATIENT
  Age: 83 Year
  Sex: Female

DRUGS (9)
  1. TRENTADIL [Suspect]
     Active Substance: BAMIFYLLINE
     Indication: ASTHMA
     Dosage: UNK, 2X/DAY
     Route: 065
     Dates: start: 20160119, end: 20160726
  2. LEVOTHYROX [Concomitant]
     Active Substance: LEVOTHYROXINE
     Dosage: UNK
  3. SPIRIVA RESPIMAT [Suspect]
     Active Substance: TIOTROPIUM BROMIDE
     Indication: ASTHMA
     Dosage: UNK, 2X/DAY
     Route: 065
     Dates: start: 20160119, end: 20160726
  4. NEO MERCAZOLE [Suspect]
     Active Substance: CARBIMAZOLE
     Indication: HYPERTHYROIDISM
     Dosage: 5 MG, DAILY
     Route: 065
     Dates: start: 20160321, end: 20160727
  5. CYCLADOL [Suspect]
     Active Substance: PIROXICAM
     Dosage: 20 MG, DAILY
     Route: 065
     Dates: start: 20160723, end: 20160726
  6. DAFLON [Suspect]
     Active Substance: DIOSMIN\HESPERIDIN
     Indication: PERIPHERAL VENOUS DISEASE
     Dosage: UNK
     Route: 065
     Dates: start: 20160315, end: 201607
  7. INNOVAIR [Suspect]
     Active Substance: BECLOMETHASONE DIPROPIONATE\FORMOTEROL
     Indication: ASTHMA
     Dosage: UNK, 2X/DAY
     Route: 065
     Dates: start: 20160119, end: 20160726
  8. LOVENOX [Concomitant]
     Active Substance: ENOXAPARIN SODIUM
     Dosage: UNK
     Dates: end: 200607
  9. CORDARONE [Suspect]
     Active Substance: AMIODARONE HYDROCHLORIDE
     Dosage: UNK
     Route: 065
     Dates: start: 20160315, end: 20160713

REACTIONS (4)
  - Neutropenia [Recovered/Resolved]
  - Thrombocytopenia [Unknown]
  - Leukopenia [Recovered/Resolved]
  - Anaemia [Unknown]

NARRATIVE: CASE EVENT DATE: 20160727
